FAERS Safety Report 7383097-9 (Version None)
Quarter: 2011Q1

REPORT INFORMATION
  Report Type: 
  Country: None (occurrence: None)
  Receive Date: 20110330
  Receipt Date: 20110328
  Transmission Date: 20110831
  Serious: No
  Sender: FDA-Public Use
  Company Number: US-PFIZER INC-2011069559

PATIENT
  Sex: Male
  Weight: 63.492 kg

DRUGS (4)
  1. PLAVIX [Suspect]
     Indication: ANTICOAGULANT THERAPY
     Dosage: 75 MG, 1X/DAY
  2. CHANTIX [Suspect]
     Indication: SMOKING CESSATION THERAPY
     Dosage: 0.5 MG, 2X/DAY
     Route: 048
     Dates: start: 20110115
  3. SIMVASTATIN [Concomitant]
     Dosage: 20 MG, 1X/DAY
     Route: 048
  4. METOPROLOL [Concomitant]
     Dosage: 25 MG, 2X/DAY
     Route: 048

REACTIONS (2)
  - URINE COLOUR ABNORMAL [None]
  - DIARRHOEA [None]
